FAERS Safety Report 17216175 (Version 5)
Quarter: 2020Q2

REPORT INFORMATION
  Report Type: Report from Study
  Country: US (occurrence: US)
  Receive Date: 20191230
  Receipt Date: 20200407
  Transmission Date: 20200713
  Serious: Yes (Hospitalization)
  Sender: FDA-Public Use
  Company Number: US-ACTELION-A-NJ2019-195576

PATIENT
  Sex: Female
  Weight: 55.33 kg

DRUGS (3)
  1. OPSUMIT [Suspect]
     Active Substance: MACITENTAN
     Dosage: 10 MG
     Route: 048
     Dates: end: 20191025
  2. OPSUMIT [Suspect]
     Active Substance: MACITENTAN
     Indication: PULMONARY ARTERIAL HYPERTENSION
     Dosage: 10 MG, QD
     Route: 048
  3. ADCIRCA [Concomitant]
     Active Substance: TADALAFIL

REACTIONS (13)
  - Hospitalisation [Unknown]
  - Tremor [Unknown]
  - Vomiting [Unknown]
  - Nausea [Unknown]
  - Dizziness [Unknown]
  - Urinary tract infection [Unknown]
  - Loss of personal independence in daily activities [Unknown]
  - Panic attack [Unknown]
  - Back pain [Unknown]
  - Product dose omission [Unknown]
  - Gait disturbance [Unknown]
  - Malaise [Unknown]
  - Adverse event [Unknown]
